FAERS Safety Report 19405762 (Version 2)
Quarter: 2021Q2

REPORT INFORMATION
  Report Type: Spontaneous
  Country: US (occurrence: US)
  Receive Date: 20210611
  Receipt Date: 20210616
  Transmission Date: 20210717
  Serious: No
  Sender: FDA-Public Use
  Company Number: US-BAYER-2021-156459

PATIENT
  Age: 59 Year
  Sex: Female

DRUGS (1)
  1. CLIMARA PRO [Suspect]
     Active Substance: ESTRADIOL\LEVONORGESTREL
     Indication: HOT FLUSH
     Dosage: UNK
     Route: 062
     Dates: start: 2014

REACTIONS (6)
  - Product adhesion issue [None]
  - Product dose omission issue [None]
  - Product adhesion issue [None]
  - Wrong technique in product usage process [None]
  - Drug withdrawal syndrome [None]
  - Product adhesion issue [None]

NARRATIVE: CASE EVENT DATE: 2016
